FAERS Safety Report 4473960-0 (Version None)
Quarter: 2004Q4

REPORT INFORMATION
  Report Type: 
  Country: None (occurrence: None)
  Receive Date: 20041014
  Receipt Date: 20041005
  Transmission Date: 20050328
  Serious: Yes (Hospitalization, Other)
  Sender: FDA-Public Use
  Company Number: FR-JNJFOC-20041002158

PATIENT
  Age: 38 Year
  Sex: Male

DRUGS (4)
  1. REMICADE [Suspect]
     Indication: POLYARTHRITIS
     Route: 042
  2. ENBREL [Suspect]
     Indication: RHEUMATOID ARTHRITIS
     Route: 058
  3. METHOTREXATE [Suspect]
     Indication: POLYARTHRITIS
     Route: 049
  4. LEFLUNOMIDE [Suspect]
     Indication: POLYARTHRITIS
     Route: 049

REACTIONS (7)
  - BETA 2 MICROGLOBULIN INCREASED [None]
  - BLOOD LACTATE DEHYDROGENASE INCREASED [None]
  - DRUG INTERACTION [None]
  - HAEMOGLOBIN DECREASED [None]
  - LIVER DISORDER [None]
  - RED BLOOD CELL SEDIMENTATION RATE INCREASED [None]
  - T-CELL LYMPHOMA STAGE IV [None]
